FAERS Safety Report 15140495 (Version 1)
Quarter: 2018Q3

REPORT INFORMATION
  Report Type: Spontaneous
  Country: US (occurrence: US)
  Receive Date: 20180618
  Receipt Date: 20180618
  Transmission Date: 20181010
  Serious: Yes (Hospitalization)
  Sender: FDA-Public Use
  Company Number: None

PATIENT
  Age: 35 Year
  Sex: Female

DRUGS (1)
  1. GAMMAGARD LIQUID [Suspect]
     Active Substance: HUMAN IMMUNOGLOBULIN G
     Indication: SJOGREN^S SYNDROME
     Dosage: ?          OTHER FREQUENCY:Q4WK;?
     Route: 042
     Dates: start: 20170802, end: 20170804

REACTIONS (1)
  - Meningitis aseptic [None]

NARRATIVE: CASE EVENT DATE: 20170804
